FAERS Safety Report 6875272-4 (Version None)
Quarter: 2010Q3

REPORT INFORMATION
  Report Type: 
  Country: None (occurrence: None)
  Receive Date: 20100727
  Receipt Date: 20100715
  Transmission Date: 20110219
  Serious: Yes (Hospitalization)
  Sender: FDA-Public Use
  Company Number: US-JNJFOC-20100703772

PATIENT
  Sex: Female
  Weight: 55.4 kg

DRUGS (23)
  1. REMICADE [Suspect]
     Indication: INFLAMMATORY BOWEL DISEASE
     Route: 042
  2. NU-IRON [Concomitant]
  3. CEPHALEXIN [Concomitant]
  4. HIBICLENS [Concomitant]
  5. CLOTRIMAZOLE [Concomitant]
  6. FOLIC ACID [Concomitant]
  7. VITAMIN D [Concomitant]
  8. LACTAID [Concomitant]
  9. AMYLASE LIPASE PROTEASE [Concomitant]
  10. AMITRIPTYLINE HYDROCHLORIDE [Concomitant]
  11. LUXIQ [Concomitant]
  12. PROAIR HFA [Concomitant]
  13. FLUTICASONE PROPIONATE [Concomitant]
  14. 5-ASA [Concomitant]
  15. METHOTREXATE [Concomitant]
  16. MUPIROCIN [Concomitant]
  17. BACTROBAN [Concomitant]
     Route: 045
  18. ALBUTEROL [Concomitant]
  19. MONTELUKAST [Concomitant]
  20. MULTIPLE VITAMIN [Concomitant]
  21. OMEGA-3 FATTY ACIDS [Concomitant]
  22. PRILOSEC [Concomitant]
  23. PROBIOTICS [Concomitant]

REACTIONS (2)
  - CLOSTRIDIAL INFECTION [None]
  - URINARY TRACT INFECTION PSEUDOMONAL [None]
